FAERS Safety Report 15226319 (Version 1)
Quarter: 2018Q3

REPORT INFORMATION
  Report Type: Spontaneous
  Country: US (occurrence: US)
  Receive Date: 20180706
  Receipt Date: 20180706
  Transmission Date: 20181010
  Serious: No
  Sender: FDA-Public Use
  Company Number: None

PATIENT
  Age: 77 Year

DRUGS (2)
  1. DUREZOL [Suspect]
     Active Substance: DIFLUPREDNATE
  2. PREDNISOLONE ACETATE. [Suspect]
     Active Substance: PREDNISOLONE ACETATE

REACTIONS (1)
  - Transplant failure [None]
